FAERS Safety Report 25752432 (Version 1)
Quarter: 2025Q3

REPORT INFORMATION
  Report Type: Spontaneous
  Country: EU (occurrence: EU)
  Receive Date: 20250902
  Receipt Date: 20250902
  Transmission Date: 20251020
  Serious: Yes (Other)
  Sender: AMGEN
  Company Number: EU-AMGEN-FRASP2025170023

PATIENT

DRUGS (1)
  1. REPATHA [Suspect]
     Active Substance: EVOLOCUMAB
     Indication: Type IIa hyperlipidaemia
     Dosage: UNK, QMO (6 INJECTIONS/MONTH)
     Route: 065

REACTIONS (4)
  - Vascular graft [Unknown]
  - Infarction [Unknown]
  - Blood pressure abnormal [Unknown]
  - Off label use [Unknown]
